FAERS Safety Report 25848791 (Version 1)
Quarter: 2025Q3

REPORT INFORMATION
  Report Type: Spontaneous
  Country: US (occurrence: US)
  Receive Date: 20250925
  Receipt Date: 20250925
  Transmission Date: 20251020
  Serious: No
  Sender: MYLAN
  Company Number: US-MYLANLABS-2025M1077503

PATIENT
  Age: 73 Year
  Sex: Female

DRUGS (13)
  1. LYRICA [Suspect]
     Active Substance: PREGABALIN
     Indication: Sciatica
  2. AYVAKIT [Suspect]
     Active Substance: AVAPRITINIB
     Indication: Indolent systemic mastocytosis
     Dosage: 25 MILLIGRAM, QD (PER DAY)
     Dates: start: 20250721
  3. ATORVASTATIN [Concomitant]
     Active Substance: ATORVASTATIN
  4. DOXEPIN [Concomitant]
     Active Substance: DOXEPIN
  5. FAMOTIDINE [Concomitant]
     Active Substance: FAMOTIDINE
  6. LEVOTHYROXINE [Concomitant]
     Active Substance: LEVOTHYROXINE
  7. METOPROLOL SUCCINATE [Concomitant]
     Active Substance: METOPROLOL SUCCINATE
  8. MONTELUKAST [Concomitant]
     Active Substance: MONTELUKAST
  9. OZEMPIC [Concomitant]
     Active Substance: SEMAGLUTIDE
  10. PROLIA [Concomitant]
     Active Substance: DENOSUMAB
  11. TELMISARTAN [Concomitant]
     Active Substance: TELMISARTAN
  12. TYLENOL [Concomitant]
     Active Substance: ACETAMINOPHEN
  13. XOLAIR [Concomitant]
     Active Substance: OMALIZUMAB

REACTIONS (4)
  - Sciatica [Not Recovered/Not Resolved]
  - Pain in extremity [Not Recovered/Not Resolved]
  - Dizziness [Not Recovered/Not Resolved]
  - Off label use [Unknown]
